FAERS Safety Report 5193639-X (Version None)
Quarter: 2006Q4

REPORT INFORMATION
  Report Type: 
  Country: None (occurrence: None)
  Receive Date: 20061228
  Receipt Date: 20021211
  Transmission Date: 20070319
  Serious: Yes (Disabling, Congenital Anomaly, Other)
  Sender: FDA-Public Use
  Company Number: US-BRISTOL-MYERS SQUIBB COMPANY-12134581

PATIENT
  Age: 1 Day
  Sex: Female
  Weight: 3 kg

DRUGS (7)
  1. VIDEX EC [Suspect]
     Indication: HIV INFECTION
     Route: 064
     Dates: end: 19970201
  2. RETROVIR [Suspect]
     Route: 064
     Dates: end: 19970508
  3. RETROVIR [Suspect]
     Indication: PROPHYLAXIS
     Dosage: SYRUP
     Route: 048
     Dates: start: 19970509, end: 19970608
  4. EPIVIR [Suspect]
     Route: 064
     Dates: start: 19970201, end: 19970508
  5. EPIVIR [Suspect]
     Indication: PROPHYLAXIS
     Dosage: SYRUP X 2
     Route: 048
     Dates: start: 19970509, end: 19970608
  6. SKENAN [Concomitant]
     Route: 064
     Dates: end: 19970201
  7. METHADONE HCL [Concomitant]
     Route: 064
     Dates: start: 19970201

REACTIONS (4)
  - DRUG TOXICITY [None]
  - HEART DISEASE CONGENITAL [None]
  - PREGNANCY [None]
  - VENTRICULAR SEPTAL DEFECT [None]
